FAERS Safety Report 21181701 (Version 1)
Quarter: 2022Q3

REPORT INFORMATION
  Report Type: Spontaneous
  Country: US (occurrence: US)
  Receive Date: 20220806
  Receipt Date: 20220806
  Transmission Date: 20221027
  Serious: No
  Sender: FDA-Public Use
  Company Number: US-SA-SAC20220805000182

PATIENT
  Sex: Female

DRUGS (8)
  1. DUPIXENT [Suspect]
     Active Substance: DUPILUMAB
     Indication: Dermatitis atopic
     Dosage: 300 MG, QOW
     Route: 058
     Dates: start: 2020
  2. FISH OIL [Concomitant]
     Active Substance: FISH OIL
  3. VITAMIN D3 [Concomitant]
     Active Substance: CHOLECALCIFEROL
  4. PREGABALIN [Concomitant]
     Active Substance: PREGABALIN
  5. MIRTAZAPINE [Concomitant]
     Active Substance: MIRTAZAPINE
  6. VENLAFAXINE HCL [Concomitant]
     Active Substance: VENLAFAXINE HYDROCHLORIDE
  7. AMLODIPINE BESYLATE [Concomitant]
     Active Substance: AMLODIPINE BESYLATE
  8. AIRBORNE [Concomitant]
     Active Substance: HERBALS\MINERALS\VITAMINS

REACTIONS (1)
  - Back pain [Unknown]
